FAERS Safety Report 10059724 (Version 1)
Quarter: 2014Q2

REPORT INFORMATION
  Report Type: Spontaneous
  Country: US (occurrence: None)
  Receive Date: 20140402
  Receipt Date: 20140402
  Transmission Date: 20141212
  Serious: Yes (Other)
  Sender: FDA-Public Use
  Company Number: 2010US000782

PATIENT
  Age: 72 Year
  Sex: Female

DRUGS (7)
  1. VESICARE [Suspect]
     Indication: MICTURITION URGENCY
     Route: 048
     Dates: start: 2008
  2. IMIPRAMINE (IMIPRAMINE) (IMIPRAMINE) [Suspect]
     Indication: PRODUCT USED FOR UNKNOWN INDICATION
  3. PROZAC [Suspect]
     Indication: PRODUCT USED FOR UNKNOWN INDICATION
  4. DITROPAN [Suspect]
     Indication: PRODUCT USED FOR UNKNOWN INDICATION
  5. OXYTROL [Suspect]
     Indication: PRODUCT USED FOR UNKNOWN INDICATION
  6. SANCTURA [Suspect]
     Indication: PRODUCT USED FOR UNKNOWN INDICATION
  7. PREMARIN [Suspect]
     Indication: PRODUCT USED FOR UNKNOWN INDICATION

REACTIONS (8)
  - Drug ineffective [None]
  - Suicidal ideation [None]
  - Depression [None]
  - Urinary retention [None]
  - Bladder disorder [None]
  - Therapeutic response changed [None]
  - Incontinence [None]
  - Dysuria [None]
